FAERS Safety Report 9120258 (Version 1)
Quarter: 2013Q1

REPORT INFORMATION
  Report Type: Spontaneous
  Country: US (occurrence: US)
  Receive Date: 20130226
  Receipt Date: 20130226
  Transmission Date: 20140127
  Serious: Yes (Other)
  Sender: FDA-Public Use
  Company Number: US-BAYER-2013-022315

PATIENT
  Age: 83 Year
  Sex: Male
  Weight: 79.37 kg

DRUGS (2)
  1. PHILLIPS^ LIQUID GELS STOOL SOFTENER [Suspect]
     Indication: CONSTIPATION
     Dosage: 1 DF, PRN
     Route: 048
  2. PHILLIPS^ MILK OF MAGNESIA LIQUID ORIGINAL [Suspect]
     Indication: CONSTIPATION
     Dosage: UNK UNK, PRN
     Route: 048

REACTIONS (2)
  - Diabetes mellitus [None]
  - Therapeutic response unexpected [None]
